FAERS Safety Report 5567031-X (Version None)
Quarter: 2007Q4

REPORT INFORMATION
  Report Type: 
  Country: None (occurrence: None)
  Receive Date: 20071219
  Receipt Date: 20071207
  Transmission Date: 20080405
  Serious: Yes (Hospitalization)
  Sender: FDA-Public Use
  Company Number: US-ROCHE-535683

PATIENT
  Age: 75 Year
  Sex: Female
  Weight: 51.3 kg

DRUGS (5)
  1. BONIVA [Suspect]
     Indication: OSTEOPOROSIS
     Route: 048
     Dates: start: 20061101
  2. NEXIUM [Concomitant]
  3. ASPIRIN [Concomitant]
  4. METOPROLOL SUCCINATE [Concomitant]
  5. ZOCOR [Concomitant]

REACTIONS (2)
  - CORONARY ARTERY DISEASE [None]
  - HERNIA [None]
